FAERS Safety Report 12475298 (Version 1)
Quarter: 2016Q2

REPORT INFORMATION
  Report Type: Spontaneous
  Country: US (occurrence: US)
  Receive Date: 20160617
  Receipt Date: 20160617
  Transmission Date: 20160815
  Serious: Yes (Other)
  Sender: FDA-Public Use
  Company Number: US-GLAXOSMITHKLINE-US2016085613

PATIENT
  Age: 74 Year
  Sex: Male

DRUGS (1)
  1. PREVACID [Suspect]
     Active Substance: LANSOPRAZOLE
     Indication: GASTROOESOPHAGEAL REFLUX DISEASE
     Dosage: 2 CAPSULES, QD
     Route: 048
     Dates: start: 2011, end: 20160613

REACTIONS (3)
  - Renal surgery [Recovered/Resolved]
  - Overdose [Unknown]
  - Off label use [Unknown]
